FAERS Safety Report 8064535-5 (Version None)
Quarter: 2012Q1

REPORT INFORMATION
  Report Type: 
  Country: None (occurrence: None)
  Receive Date: 20120123
  Receipt Date: 20120116
  Transmission Date: 20120608
  Serious: Yes (Other)
  Sender: FDA-Public Use
  Company Number: US-ASTRAZENECA-2010SE41771

PATIENT
  Age: 47 Year
  Sex: Male

DRUGS (4)
  1. PRILOSEC [Suspect]
     Route: 048
  2. NEXIUM [Suspect]
     Route: 048
  3. PREVACID [Concomitant]
  4. ZANTAC [Concomitant]

REACTIONS (6)
  - DRUG INEFFECTIVE [None]
  - ACCIDENT [None]
  - ASPIRATION [None]
  - ILL-DEFINED DISORDER [None]
  - DRUG DOSE OMISSION [None]
  - UPPER LIMB FRACTURE [None]
